FAERS Safety Report 8886441 (Version 1)
Quarter: 2012Q4

REPORT INFORMATION
  Report Type: 
  Country: FR (occurrence: FR)
  Receive Date: 20121105
  Receipt Date: 20121105
  Transmission Date: 20130627
  Serious: Yes (Other)
  Sender: FDA-Public Use
  Company Number: FR-JNJFOC-20121017068

PATIENT
  Age: 19 Year
  Sex: Female

DRUGS (2)
  1. EPITOMAX [Suspect]
     Indication: EPILEPSY
     Route: 048
  2. DEPAKINE [Concomitant]
     Indication: EPILEPSY
     Route: 065

REACTIONS (1)
  - Psychotic disorder [Unknown]
